FAERS Safety Report 7889068-8 (Version None)
Quarter: 2011Q4

REPORT INFORMATION
  Report Type: 
  Country: None (occurrence: None)
  Receive Date: 20111103
  Receipt Date: 20111020
  Transmission Date: 20120403
  Serious: Yes (Other)
  Sender: FDA-Public Use
  Company Number: BR-PFIZER INC-2011266660

PATIENT
  Age: 48 Year
  Sex: Female

DRUGS (12)
  1. DIOVAN [Suspect]
     Dosage: 5 MG 1 IN 1 DAY
  2. NELFINAVIR MESYLATE [Suspect]
     Indication: PRODUCT USED FOR UNKNOWN INDICATION
     Dosage: UNK
     Dates: start: 20010101, end: 20050101
  3. DIOVAN [Suspect]
     Indication: PRODUCT USED FOR UNKNOWN INDICATION
     Dosage: 320/10 MG
     Dates: start: 20110527
  4. ZIDOVUDINE [Concomitant]
     Dosage: UNK
     Dates: start: 20050101
  5. ATAZANAVIR [Concomitant]
     Dosage: UNK
     Dates: start: 20050101
  6. LAMIVUDINE [Concomitant]
     Dosage: UNK
     Dates: start: 20050101
  7. HYDROCHLOROTHIAZIDE [Concomitant]
     Dosage: UNK
  8. LAMIVUDINE [Concomitant]
     Dosage: UNK
     Dates: start: 20010101, end: 20050101
  9. CAPTOPRIL [Concomitant]
     Dosage: 50 MG, 2X/DAY
     Dates: start: 20080101
  10. RITONAVIR [Concomitant]
     Dosage: UNK
     Dates: start: 20050101
  11. HYDROCHLOROTHIAZIDE [Concomitant]
     Dosage: 25 MG, 1X/DAY
     Dates: start: 20080101
  12. LAMIVUDINE [Concomitant]
     Dosage: UNK
     Dates: start: 19980101, end: 20010101

REACTIONS (3)
  - OEDEMA [None]
  - ARTERIAL DISORDER [None]
  - BLOOD PRESSURE ABNORMAL [None]
